FAERS Safety Report 8228105-8 (Version None)
Quarter: 2012Q1

REPORT INFORMATION
  Report Type: 
  Country: None (occurrence: None)
  Receive Date: 20120322
  Receipt Date: 20111220
  Transmission Date: 20120608
  Serious: Yes (Other)
  Sender: FDA-Public Use
  Company Number: US-BRISTOL-MYERS SQUIBB COMPANY-16312993

PATIENT
  Age: 51 Year
  Sex: Male

DRUGS (1)
  1. ERBITUX [Suspect]
     Dates: start: 20111115

REACTIONS (1)
  - ANAPHYLACTIC REACTION [None]
